FAERS Safety Report 11392689 (Version 1)
Quarter: 2015Q3

REPORT INFORMATION
  Report Type: Spontaneous
  Country: NL (occurrence: NL)
  Receive Date: 20150818
  Receipt Date: 20150818
  Transmission Date: 20151125
  Serious: Yes (Other)
  Sender: FDA-Public Use
  Company Number: PHHY2015NL097459

PATIENT
  Age: 32 Year
  Sex: Female

DRUGS (2)
  1. ACENOCOUMAROL [Concomitant]
     Active Substance: ACENOCOUMAROL
     Indication: FALLOT^S TETRALOGY
     Route: 065
  2. HEPARIN [Suspect]
     Active Substance: HEPARIN SODIUM
     Indication: FALLOT^S TETRALOGY
     Route: 065

REACTIONS (3)
  - Maternal exposure during pregnancy [Unknown]
  - Transient ischaemic attack [Unknown]
  - Thrombosis [Unknown]
